FAERS Safety Report 5795800-X (Version None)
Quarter: 2008Q3

REPORT INFORMATION
  Report Type: 
  Country: None (occurrence: None)
  Receive Date: 20080701
  Receipt Date: 20080506
  Transmission Date: 20090109
  Serious: No
  Sender: FDA-Public Use
  Company Number: US-BAYER-200822620NA

PATIENT
  Age: 69 Year
  Weight: 100 kg

DRUGS (6)
  1. ULTRAVIST 370 [Suspect]
     Indication: COMPUTERISED TOMOGRAM ABDOMEN
     Dosage: TOTAL DAILY DOSE: 150 ML  UNIT DOSE: 500 ML
     Route: 042
     Dates: start: 20080506, end: 20080506
  2. AVAPRO [Concomitant]
  3. TRIAMTERENE [Concomitant]
  4. CENTRUM SILVER [Concomitant]
  5. VITAMIN E [Concomitant]
  6. ECHINACEA [Concomitant]

REACTIONS (1)
  - URTICARIA [None]
